FAERS Safety Report 15263779 (Version 1)
Quarter: 2018Q3

REPORT INFORMATION
  Report Type: Spontaneous
  Country: US (occurrence: US)
  Receive Date: 20180720
  Receipt Date: 20180720
  Transmission Date: 20181010
  Serious: No
  Sender: FDA-Public Use
  Company Number: None

PATIENT
  Age: 78 Year
  Sex: Male
  Weight: 108.6 kg

DRUGS (9)
  1. ELIGARD [Suspect]
     Active Substance: LEUPROLIDE ACETATE
     Indication: PROSTATE CANCER
     Dosage: ?          OTHER FREQUENCY:ONCE Q 6 MONTHS;?
     Route: 058
     Dates: start: 20170707, end: 20180713
  2. SIMVASTATIN. [Concomitant]
     Active Substance: SIMVASTATIN
  3. DENOSUMAB [Concomitant]
     Active Substance: DENOSUMAB
  4. CALCIUM CITRATE [Concomitant]
     Active Substance: CALCIUM CITRATE
  5. ASPIRIN. [Concomitant]
     Active Substance: ASPIRIN
  6. CALCIUM?VITAMIN D [Concomitant]
     Active Substance: CALCIUM\VITAMIN D
  7. VITAMIN E [Concomitant]
     Active Substance: .ALPHA.-TOCOPHEROL
  8. ATENOLOL. [Concomitant]
     Active Substance: ATENOLOL
  9. MULTIVITAMIN [Concomitant]
     Active Substance: VITAMINS

REACTIONS (2)
  - Device malfunction [None]
  - Syringe issue [None]

NARRATIVE: CASE EVENT DATE: 20180713
